FAERS Safety Report 8905517 (Version 4)
Quarter: 2012Q4

REPORT INFORMATION
  Report Type: Report from Study
  Country: AT (occurrence: AT)
  Receive Date: 20121109
  Receipt Date: 20121211
  Transmission Date: 20130627
  Serious: Yes (Hospitalization)
  Sender: FDA-Public Use
  Company Number: AT-VERTEX PHARMACEUTICAL INC.-2012-024360

PATIENT
  Age: 61 Year
  Sex: Male
  Weight: 100 kg

DRUGS (14)
  1. VX-950 (TELAPREVIR) [Suspect]
     Indication: HEPATITIS C
     Dosage: 750 mg, tid
     Route: 048
     Dates: start: 20120828, end: 20121102
  2. COPEGUS [Suspect]
     Indication: HEPATITIS C
     Dosage: Dosage Form: Tablet
     Route: 048
     Dates: start: 20120828, end: 20121015
  3. COPEGUS [Suspect]
     Dosage: Dosage Form: Tablet
     Route: 048
     Dates: start: 20121016, end: 20121104
  4. PEGASYS [Suspect]
     Indication: HEPATITIS C
     Dosage: Dosage Form: Injection
     Route: 065
     Dates: start: 20120828
  5. ACTOS [Concomitant]
     Indication: DIABETES MELLITUS
     Dosage: Dosage Form: Unspecified, pre-trial
     Route: 048
  6. URSOFALK [Concomitant]
     Indication: CHOLESTASIS
     Dosage: Dosage Form: Unspecified, pre-trial
     Route: 048
  7. NORVASC [Concomitant]
     Indication: HYPERTENSION
     Dosage: Dosage Form: Unspecified, pre-trial
     Route: 048
  8. MAXI-KALZ VIT D3 [Concomitant]
     Indication: OSTEOPOROSIS
     Dosage: Dosage Form: Unspecified, Pre-trial
     Route: 065
  9. NOVOMIX [Concomitant]
     Indication: DIABETES MELLITUS
     Dosage: UNK UNK, prn
     Route: 058
  10. ADVANTAN [Concomitant]
     Indication: RASH
     Dosage: Dosage Form: Unspecified
     Route: 061
     Dates: start: 20120910, end: 20121023
  11. ULTRABASE [Concomitant]
     Indication: PRURITUS
     Dosage: Dosage Form: Unspecified
     Route: 061
     Dates: start: 20120910
  12. NERIFORTE OINTMENT [Concomitant]
     Indication: RASH
     Dosage: Dosage Form: Unspecified
     Route: 061
     Dates: start: 20121023
  13. AERIUS [Concomitant]
     Indication: PRURITUS
     Dosage: Dosage Form: Unspecified
     Route: 048
  14. DIBONDRIN [Concomitant]
     Indication: PRURITUS
     Dosage: Dosage Form: Unspecified
     Route: 048
     Dates: start: 20121023

REACTIONS (1)
  - Urinary tract infection [Recovered/Resolved]
